FAERS Safety Report 18201304 (Version 2)
Quarter: 2020Q4

REPORT INFORMATION
  Report Type: Report from Study
  Country: US (occurrence: US)
  Receive Date: 20200827
  Receipt Date: 20201027
  Transmission Date: 20210113
  Serious: Yes (Hospitalization, Other)
  Sender: FDA-Public Use
  Company Number: US-BIOGEN-2020BI00911035

PATIENT
  Sex: Female

DRUGS (1)
  1. TYSABRI [Suspect]
     Active Substance: NATALIZUMAB
     Indication: MULTIPLE SCLEROSIS
     Route: 065
     Dates: start: 20180515

REACTIONS (11)
  - Mobility decreased [Unknown]
  - Neuropathy peripheral [Unknown]
  - Urinary tract infection [Unknown]
  - Type 2 diabetes mellitus [Unknown]
  - Intervertebral disc degeneration [Unknown]
  - Obesity [Unknown]
  - Relapsing-remitting multiple sclerosis [Unknown]
  - Lymphoedema [Unknown]
  - Illness [Unknown]
  - Radiculopathy [Unknown]
  - Hypertension [Unknown]
